FAERS Safety Report 6125279-X (Version None)
Quarter: 2009Q1

REPORT INFORMATION
  Report Type: 
  Country: None (occurrence: None)
  Receive Date: 20090319
  Receipt Date: 20090319
  Transmission Date: 20090719
  Serious: No
  Sender: FDA-Public Use
  Company Number: None

PATIENT
  Sex: Female
  Weight: 99.7913 kg

DRUGS (1)
  1. LAMICTAL [Suspect]
     Indication: CONVULSION
     Dosage: 100 MG DAILY PO
     Route: 048
     Dates: start: 20071119, end: 20081201

REACTIONS (3)
  - AMNESIA [None]
  - CONVULSION [None]
  - LOSS OF CONSCIOUSNESS [None]
